FAERS Safety Report 17745240 (Version 1)
Quarter: 2020Q2

REPORT INFORMATION
  Report Type: Spontaneous
  Country: US (occurrence: US)
  Receive Date: 20200505
  Receipt Date: 20200505
  Transmission Date: 20200714
  Serious: Yes (Death)
  Sender: FDA-Public Use
  Company Number: US-VERTEX PHARMACEUTICALS-2020-010052

PATIENT
  Age: 34 Year
  Sex: Female
  Weight: 63 kg

DRUGS (1)
  1. TRIKAFTA [Suspect]
     Active Substance: ELEXACAFTOR\IVACAFTOR\TEZACAFTOR
     Indication: CYSTIC FIBROSIS
     Dosage: 100 MG ELEXACAFTOR/ 50 MG TEZACAFTOR/ 75 MG IVACAFTOR; 150MG IVACAFTOR) (REDUCED DOSE)
     Route: 048
     Dates: start: 20200220, end: 20200325

REACTIONS (1)
  - Death [Fatal]

NARRATIVE: CASE EVENT DATE: 20200325
